FAERS Safety Report 7800466 (Version 15)
Quarter: 2012Q4

REPORT INFORMATION
  Report Type: 
  Country: CA (occurrence: CA)
  Receive Date: 20110204
  Receipt Date: 20121005
  Transmission Date: 20130627
  Serious: Yes (Other)
  Sender: FDA-Public Use
  Company Number: CA-ROCHE-GNE312999

PATIENT
  Age: 49 Year
  Sex: Female
  Weight: 84 kg

DRUGS (10)
  1. XOLAIR [Suspect]
     Indication: ASTHMA
     Dosage: 150 mg, 1/Month
     Route: 058
     Dates: start: 20070920
  2. XOLAIR [Suspect]
     Dosage: 150 mg, Q2W
     Route: 065
     Dates: start: 20091203
  3. XOLAIR [Suspect]
     Dosage: 150 mg, 1/Month
     Route: 058
     Dates: start: 20100225
  4. PULMICORT [Concomitant]
     Indication: PRODUCT USED FOR UNKNOWN INDICATION
     Route: 050
  5. OXEZE [Concomitant]
     Indication: PRODUCT USED FOR UNKNOWN INDICATION
     Dosage: 12 ?g, UNK
     Route: 050
  6. CYCLOKAPRON [Concomitant]
     Indication: PRODUCT USED FOR UNKNOWN INDICATION
     Route: 050
  7. CLARITHROMYCIN [Concomitant]
     Indication: PRODUCT USED FOR UNKNOWN INDICATION
     Route: 050
  8. FLUTICASONE FUROATE [Concomitant]
     Indication: PRODUCT USED FOR UNKNOWN INDICATION
     Dosage: spray
     Route: 050
  9. SALBUTAMOL [Concomitant]
     Indication: PRODUCT USED FOR UNKNOWN INDICATION
     Dosage: 100 ?g, UNK
     Route: 050
  10. CODEINE [Concomitant]
     Route: 048

REACTIONS (22)
  - Asthma [Unknown]
  - Haemoglobin decreased [Unknown]
  - Food poisoning [Unknown]
  - Malaise [Unknown]
  - Vaginal haemorrhage [Unknown]
  - Chest discomfort [Unknown]
  - Vomiting [Unknown]
  - Nasopharyngitis [Recovering/Resolving]
  - Contusion [Unknown]
  - Nasal congestion [Unknown]
  - Diarrhoea [Unknown]
  - Influenza [Unknown]
  - Bronchitis [Unknown]
  - Chest pain [Unknown]
  - Fatigue [Unknown]
  - Cough [Not Recovered/Not Resolved]
  - Dyspnoea [Unknown]
  - Heart rate increased [Unknown]
  - Rhinorrhoea [Not Recovered/Not Resolved]
  - Gastrooesophageal reflux disease [Recovering/Resolving]
  - Abdominal pain upper [Unknown]
  - Asthenia [Unknown]
